FAERS Safety Report 4290319-X (Version None)
Quarter: 2004Q1

REPORT INFORMATION
  Report Type: 
  Country: None (occurrence: None)
  Receive Date: 20040209
  Receipt Date: 20040129
  Transmission Date: 20041129
  Serious: Yes (Life-Threatening, Hospitalization, Other)
  Sender: FDA-Public Use
  Company Number: HQWYE490209DEC03

PATIENT
  Age: 25 Year
  Sex: Female

DRUGS (2)
  1. EFFEXOR XR [Suspect]
     Indication: DEPRESSION
     Dosage: 150 MG 1X PER 1 DAY, ORAL
     Route: 048
     Dates: start: 20030423, end: 20031126
  2. TRAZODONE HCL [Concomitant]

REACTIONS (3)
  - CARDIAC ARREST [None]
  - HEPATIC NEOPLASM [None]
  - POST PROCEDURAL COMPLICATION [None]
